FAERS Safety Report 14339871 (Version 7)
Quarter: 2018Q4

REPORT INFORMATION
  Report Type: Spontaneous
  Country: PL (occurrence: PL)
  Receive Date: 20171230
  Receipt Date: 20181005
  Transmission Date: 20190204
  Serious: Yes (Hospitalization, Other)
  Sender: FDA-Public Use
  Company Number: PL-MYLANLABS-2017M1083138

PATIENT
  Age: 75 Year
  Sex: Male

DRUGS (15)
  1. AMIODARONE [Suspect]
     Active Substance: AMIODARONE
     Indication: TACHYCARDIA PAROXYSMAL
  2. CARVEDILOL. [Interacting]
     Active Substance: CARVEDILOL
     Indication: TACHYCARDIA PAROXYSMAL
     Dosage: 6.25 MG, QD
     Route: 065
     Dates: start: 200504, end: 200504
  3. CILAZAPRIL [Interacting]
     Active Substance: CILAZAPRIL ANHYDROUS
     Indication: TACHYCARDIA PAROXYSMAL
     Dosage: 1 MG, QD
     Route: 005
  4. ATORVASTATIN [Suspect]
     Active Substance: ATORVASTATIN
     Indication: TACHYCARDIA PAROXYSMAL
     Dosage: 20 MG, QD
     Route: 065
  5. OPACORDEN [Interacting]
     Active Substance: AMIODARONE HYDROCHLORIDE
     Indication: TACHYCARDIA PAROXYSMAL
     Dosage: 200 MG, QD
     Route: 065
     Dates: end: 200506
  6. OPACORDEN [Interacting]
     Active Substance: AMIODARONE HYDROCHLORIDE
     Indication: SUPRAVENTRICULAR TACHYCARDIA
     Dosage: 200 MG, QD
     Route: 065
  7. CARVEDILOL. [Interacting]
     Active Substance: CARVEDILOL
     Indication: SUPRAVENTRICULAR TACHYCARDIA
  8. FUROSEMIDE MYLAN [Suspect]
     Active Substance: FUROSEMIDE
     Indication: TACHYCARDIA PAROXYSMAL
     Dosage: 40 MG, QD
     Route: 065
  9. ALLOPURINOL. [Interacting]
     Active Substance: ALLOPURINOL
     Indication: TACHYCARDIA PAROXYSMAL
     Dosage: 200 MG, QD
     Route: 065
  10. ACETYLSALICYLIC ACID [Suspect]
     Active Substance: ASPIRIN
     Indication: TACHYCARDIA PAROXYSMAL
     Dosage: 75 MG, QD
     Route: 065
  11. AMLODIPINE [Concomitant]
     Active Substance: AMLODIPINE BESYLATE
     Indication: TACHYCARDIA PAROXYSMAL
     Dosage: 5 MG, QD
  12. NEORECORMON [Concomitant]
     Active Substance: ERYTHROPOIETIN
     Indication: TACHYCARDIA PAROXYSMAL
     Dosage: 1000 DF, WEEK
     Route: 058
  13. AMLODIPINE [Interacting]
     Active Substance: AMLODIPINE BESYLATE
     Indication: TACHYCARDIA PAROXYSMAL
     Dosage: 5 MG, QD
     Route: 065
  14. OPACORDEN [Interacting]
     Active Substance: AMIODARONE HYDROCHLORIDE
     Indication: TACHYCARDIA PAROXYSMAL
  15. AMIODARONE [Suspect]
     Active Substance: AMIODARONE
     Indication: SUPRAVENTRICULAR TACHYCARDIA
     Dosage: 200 MG, QD
     Dates: start: 200506

REACTIONS (7)
  - Drug interaction [Unknown]
  - Rebound tachycardia [Recovered/Resolved]
  - Bradycardia [Recovered/Resolved]
  - Hypertension [Unknown]
  - Supraventricular tachycardia [Recovered/Resolved]
  - Tachycardia [Recovered/Resolved]
  - Chronic kidney disease [Unknown]

NARRATIVE: CASE EVENT DATE: 2005
